FAERS Safety Report 9101232 (Version 1)
Quarter: 2013Q1

REPORT INFORMATION
  Report Type: Spontaneous
  Country: FR (occurrence: FR)
  Receive Date: 20130217
  Receipt Date: 20130217
  Transmission Date: 20140127
  Serious: Yes (Life-Threatening, Hospitalization)
  Sender: FDA-Public Use
  Company Number: FR-BRISTOL-MYERS SQUIBB COMPANY-17362666

PATIENT
  Age: 49 Year
  Sex: Female

DRUGS (15)
  1. ABILIFY TABS [Suspect]
     Route: 048
     Dates: start: 20121024, end: 20121029
  2. CORTANCYL [Suspect]
     Dates: end: 20121028
  3. THERALENE [Suspect]
     Dates: end: 20121022
  4. PERINDOPRIL [Suspect]
  5. LYRICA [Suspect]
  6. INEXIUM [Suspect]
  7. LEXOMIL [Suspect]
  8. LEVOTHYROX [Suspect]
  9. NOVOMIX [Suspect]
  10. TRANSIPEG [Suspect]
  11. CARDENSIEL [Suspect]
  12. CALCIDOSE VITAMINE D3 [Suspect]
  13. NEOMYCIN [Suspect]
  14. VALACICLOVIR [Suspect]
     Indication: HERPES OPHTHALMIC
     Dosage: RECHALLENGE ON 31OCT12
     Route: 048
     Dates: start: 20121010
  15. RITUXIMAB [Suspect]
     Indication: CRYOGLOBULINAEMIA
     Dosage: 4 TH COURSE ON 11OCT12

REACTIONS (2)
  - Coma [Recovered/Resolved]
  - Febrile neutropenia [Recovered/Resolved]
